FAERS Safety Report 4360173-6 (Version None)
Quarter: 2004Q2

REPORT INFORMATION
  Report Type: 
  Country: None (occurrence: None)
  Receive Date: 20040513
  Receipt Date: 20040429
  Transmission Date: 20050107
  Serious: No
  Sender: FDA-Public Use
  Company Number: 04P-163-0259423-00

PATIENT
  Age: 53 Year
  Sex: Female

DRUGS (3)
  1. WARFARIN SODIUM [Suspect]
     Indication: PULMONARY EMBOLISM
     Dosage: SEE IMAGE
  2. HEPARIN [Concomitant]
  3. LEPIRUDIN [Concomitant]

REACTIONS (1)
  - SKIN NECROSIS [None]
